FAERS Safety Report 12577022 (Version 3)
Quarter: 2016Q3

REPORT INFORMATION
  Report Type: Spontaneous
  Country: DE (occurrence: DE)
  Receive Date: 20160720
  Receipt Date: 20160902
  Transmission Date: 20161109
  Serious: Yes (Hospitalization, Other)
  Sender: FDA-Public Use
  Company Number: DE-BRISTOL-MYERS SQUIBB COMPANY-BMS-2016-055638

PATIENT
  Age: 23 Year
  Sex: Female

DRUGS (3)
  1. NORVIR [Suspect]
     Active Substance: RITONAVIR
     Indication: HIV INFECTION
     Dosage: 100 MG, UNK
     Route: 048
     Dates: start: 201402
  2. TRUVADA [Suspect]
     Active Substance: EMTRICITABINE\TENOFOVIR DISOPROXIL FUMARATE
     Indication: HIV INFECTION
     Dosage: 1 DF, UNK
     Route: 048
     Dates: start: 201402
  3. REYATAZ [Suspect]
     Active Substance: ATAZANAVIR SULFATE
     Indication: HIV INFECTION
     Dosage: 300 MG, QD
     Route: 048
     Dates: start: 201402

REACTIONS (9)
  - Maternal exposure during pregnancy [Recovered/Resolved]
  - Placenta accreta [Unknown]
  - Vaginal haemorrhage [Unknown]
  - Haemorrhagic anaemia [Unknown]
  - Transfusion [Unknown]
  - Ectopic pregnancy [Unknown]
  - Cervicectomy [Unknown]
  - Placenta praevia [Unknown]
  - Abortion induced [Unknown]

NARRATIVE: CASE EVENT DATE: 201606
